FAERS Safety Report 9937998 (Version 2)
Quarter: 2014Q2

REPORT INFORMATION
  Report Type: Not Available
  Country: US (occurrence: US)
  Receive Date: 20140303
  Receipt Date: 20140429
  Transmission Date: 20141212
  Serious: Yes (Hospitalization, Other)
  Sender: FDA-Public Use
  Company Number: US-LUPIN PHARMACEUTICALS INC.-E2B_00001744

PATIENT
  Age: 71 Year
  Sex: Female
  Weight: 101.24 kg

DRUGS (11)
  1. ZIPRASIDONE HCL [Suspect]
     Indication: BIPOLAR I DISORDER
     Dates: start: 20140203, end: 20140206
  2. ZIPRASIDONE HCL [Suspect]
     Route: 065
  3. EFFEXOR [Concomitant]
     Indication: BIPOLAR I DISORDER
  4. EFFEXOR [Concomitant]
     Dates: start: 20140203
  5. LITHIUM [Concomitant]
     Indication: BIPOLAR I DISORDER
  6. LITHIUM [Concomitant]
     Route: 065
  7. GLIPIZIDE + METFORMIN [Concomitant]
     Indication: DIABETES MELLITUS
  8. MULTIVITAMIN [Concomitant]
     Indication: ROUTINE HEALTH MAINTENANCE
  9. VITAMIN B12 [Concomitant]
     Indication: ROUTINE HEALTH MAINTENANCE
  10. DETROL [Concomitant]
     Indication: INCONTINENCE
  11. ARICEPT [Concomitant]
     Indication: PRODUCT USED FOR UNKNOWN INDICATION
     Route: 065

REACTIONS (10)
  - Suicidal ideation [Not Recovered/Not Resolved]
  - Tardive dyskinesia [Recovered/Resolved]
  - Mania [Recovering/Resolving]
  - Euphoric mood [Not Recovered/Not Resolved]
  - Urinary tract infection [Not Recovered/Not Resolved]
  - Rash [Recovering/Resolving]
  - Arthralgia [Not Recovered/Not Resolved]
  - Mydriasis [Recovered/Resolved]
  - Pupillary disorder [Not Recovered/Not Resolved]
  - Logorrhoea [Recovered/Resolved]
